FAERS Safety Report 25398657 (Version 1)
Quarter: 2025Q2

REPORT INFORMATION
  Report Type: Spontaneous
  Country: US (occurrence: US)
  Receive Date: 20250604
  Receipt Date: 20250604
  Transmission Date: 20250717
  Serious: No
  Sender: MALLINCKRODT
  Company Number: US-MALLINCKRODT-MNK202503343

PATIENT
  Sex: Female

DRUGS (9)
  1. CORTICOTROPIN [Suspect]
     Active Substance: CORTICOTROPIN
     Indication: Blood pressure measurement
     Route: 058
  2. CORTICOTROPIN [Suspect]
     Active Substance: CORTICOTROPIN
     Indication: Investigation
  3. MELOXICAM [Concomitant]
     Active Substance: MELOXICAM
  4. METFORMIN HYDROCHLORIDE [Concomitant]
     Active Substance: METFORMIN HYDROCHLORIDE
  5. AZELASTINE [Concomitant]
     Active Substance: AZELASTINE
  6. BUTALBITAL [Concomitant]
     Active Substance: BUTALBITAL
  7. HYDROCHLOROTHIAZIDE [Concomitant]
     Active Substance: HYDROCHLOROTHIAZIDE
  8. IRBESARTAN [Concomitant]
     Active Substance: IRBESARTAN
  9. MECLIZINE HYDROCHLORIDE [Concomitant]
     Active Substance: MECLIZINE HYDROCHLORIDE

REACTIONS (2)
  - Blood pressure decreased [Not Recovered/Not Resolved]
  - Product use in unapproved indication [Unknown]
